FAERS Safety Report 18534549 (Version 2)
Quarter: 2021Q1

REPORT INFORMATION
  Report Type: Spontaneous
  Country: US (occurrence: US)
  Receive Date: 20201123
  Receipt Date: 20210106
  Transmission Date: 20210419
  Serious: No
  Sender: FDA-Public Use
  Company Number: US-INCYTE CORPORATION-2020IN011208

PATIENT

DRUGS (3)
  1. JAKAFI [Suspect]
     Active Substance: RUXOLITINIB
     Indication: THROMBOCYTOPENIA
     Dosage: 10 MILLIGRAM, BID
     Route: 048
     Dates: start: 20180905
  2. JAKAFI [Suspect]
     Active Substance: RUXOLITINIB
     Indication: MYELODYSPLASTIC SYNDROME
  3. JAKAFI [Suspect]
     Active Substance: RUXOLITINIB
     Indication: SOFT TISSUE SARCOMA
     Dosage: 10 MILLIGRAM, BID
     Route: 048
     Dates: start: 201912

REACTIONS (4)
  - Off label use [Unknown]
  - Mouth ulceration [Unknown]
  - Malaise [Unknown]
  - Product availability issue [Unknown]

NARRATIVE: CASE EVENT DATE: 20180905
